FAERS Safety Report 10348027 (Version 1)
Quarter: 2014Q3

REPORT INFORMATION
  Report Type: Report from Study
  Country: BR (occurrence: BR)
  Receive Date: 20140729
  Receipt Date: 20140729
  Transmission Date: 20150326
  Serious: Yes (Other)
  Sender: FDA-Public Use
  Company Number: PHHY2014BR092837

PATIENT
  Sex: Female
  Weight: 88 kg

DRUGS (4)
  1. TEGRETOL [Suspect]
     Active Substance: CARBAMAZEPINE
     Indication: SYNCOPE
  2. TEGRETOL [Suspect]
     Active Substance: CARBAMAZEPINE
     Indication: EPILEPSY
     Dosage: 1 DF (1 TABLET), DAILY
     Route: 048
     Dates: start: 1983
  3. CARBAMAZEPINE. [Suspect]
     Active Substance: CARBAMAZEPINE
     Indication: INTERVERTEBRAL DISC PROTRUSION
     Dosage: UNK UKN, UNK
  4. TEGRETOL [Suspect]
     Active Substance: CARBAMAZEPINE
     Indication: INTERVERTEBRAL DISC PROTRUSION

REACTIONS (4)
  - Epilepsy [Unknown]
  - Syncope [Unknown]
  - Maternal exposure during pregnancy [Unknown]
  - Gait disturbance [Unknown]
